FAERS Safety Report 5140475-6 (Version None)
Quarter: 2006Q4

REPORT INFORMATION
  Report Type: 
  Country: None (occurrence: None)
  Receive Date: 20061025
  Receipt Date: 20061025
  Transmission Date: 20070319
  Serious: No
  Sender: FDA-Public Use
  Company Number: None

PATIENT
  Age: 62 Year
  Sex: Male
  Weight: 78.0187 kg

DRUGS (2)
  1. BORTEZOMIB 3.5 MG/ VIAL [Suspect]
     Indication: MULTIPLE MYELOMA
     Dosage: 2.6 MG   MONTHLY  IV (DURATION: 4 DOSES)
     Route: 042
     Dates: start: 20050915, end: 20060504
  2. BORTEZOMIB     3.5 MG/VIAL [Suspect]
     Dosage: 2.0 MG   MONTHLY   IV   (DURATION: 4 DOSES)
     Route: 042
     Dates: start: 20060530, end: 20060905

REACTIONS (1)
  - VISION BLURRED [None]
